FAERS Safety Report 13967956 (Version 2)
Quarter: 2017Q3

REPORT INFORMATION
  Report Type: Spontaneous
  Country: JP (occurrence: JP)
  Receive Date: 20170914
  Receipt Date: 20170918
  Transmission Date: 20171128
  Serious: Yes (Other)
  Sender: FDA-Public Use
  Company Number: JP-ROCHE-1992986

PATIENT
  Age: 51 Year
  Sex: Male

DRUGS (3)
  1. SALAZOSULFAPYRIDINE [Concomitant]
     Active Substance: SULFASALAZINE
  2. PREDNISOLONE. [Concomitant]
     Active Substance: PREDNISOLONE
  3. ACTEMRA [Suspect]
     Active Substance: TOCILIZUMAB
     Indication: STILL^S DISEASE
     Dosage: DOSAGE IS UNCERTAIN.
     Route: 065

REACTIONS (3)
  - Colitis ulcerative [Unknown]
  - Still^s disease [Unknown]
  - Off label use [Unknown]
